FAERS Safety Report 9184095 (Version 1)
Quarter: 2013Q1

REPORT INFORMATION
  Report Type: Report from Study
  Country: CA (occurrence: CA)
  Receive Date: 20130322
  Receipt Date: 20130322
  Transmission Date: 20140127
  Serious: Yes (Hospitalization)
  Sender: FDA-Public Use
  Company Number: CA-009507513-1303CAN010171

PATIENT
  Age: 69 Year
  Sex: Male

DRUGS (12)
  1. ZOCOR [Suspect]
  2. SAXAGLIPTIN [Suspect]
     Indication: TYPE 2 DIABETES MELLITUS
     Dosage: UNK
     Dates: start: 20101104, end: 20110526
  3. METFORMIN HYDROCHLORIDE [Suspect]
     Indication: TYPE 2 DIABETES MELLITUS
     Dosage: 2250MG
  4. GLICLAZIDE [Suspect]
     Indication: TYPE 2 DIABETES MELLITUS
     Dosage: 120 MG, UNK
  5. AMLODIPINE [Suspect]
  6. ALTACE [Suspect]
  7. ASPIRIN [Concomitant]
  8. BETA (ATENOLOL) [Concomitant]
  9. STATIN (SIMVASTATIN) [Concomitant]
  10. ANGIOTENSIN CONVERTING ENZYME INHIBITORS [Concomitant]
  11. FIBRIC ACID [Concomitant]
  12. CALCIUM ANTAGONIST [Concomitant]

REACTIONS (1)
  - Pancreatitis chronic [Not Recovered/Not Resolved]
